FAERS Safety Report 20895201 (Version 1)
Quarter: 2022Q2

REPORT INFORMATION
  Report Type: Spontaneous
  Country: IT (occurrence: None)
  Receive Date: 20220531
  Receipt Date: 20220531
  Transmission Date: 20220721
  Serious: Yes (Hospitalization)
  Sender: FDA-Public Use
  Company Number: 2022A195299

PATIENT
  Age: 78 Year
  Sex: Male

DRUGS (6)
  1. TICAGRELOR [Suspect]
     Active Substance: TICAGRELOR
     Indication: Platelet aggregation inhibition
     Route: 048
     Dates: start: 20220101, end: 20220517
  2. ASPIRIN [Suspect]
     Active Substance: ASPIRIN
     Indication: Platelet aggregation inhibition
     Route: 048
     Dates: start: 20220101, end: 20220517
  3. RAMIPRIL [Concomitant]
     Active Substance: RAMIPRIL
     Route: 065
  4. PANTOPRAZOLE [Concomitant]
     Active Substance: PANTOPRAZOLE
     Route: 065
  5. BISOPROLOL [Concomitant]
     Active Substance: BISOPROLOL
     Route: 065
  6. ZETIA [Concomitant]
     Active Substance: EZETIMIBE
     Route: 065

REACTIONS (3)
  - Anaemia [Recovering/Resolving]
  - Gastric disorder [Recovering/Resolving]
  - Melaena [Recovering/Resolving]

NARRATIVE: CASE EVENT DATE: 20220517
